FAERS Safety Report 5746548-9 (Version None)
Quarter: 2008Q2

REPORT INFORMATION
  Report Type: 
  Country: None (occurrence: None)
  Receive Date: 20080522
  Receipt Date: 20080227
  Transmission Date: 20081010
  Serious: No
  Sender: FDA-Public Use
  Company Number: US-BRISTOL-MYERS SQUIBB COMPANY-14064133

PATIENT
  Age: 80 Year
  Sex: Female
  Weight: 60 kg

DRUGS (9)
  1. CYTOXAN [Suspect]
     Indication: BREAST CANCER
     Route: 042
     Dates: start: 20080121
  2. TAXOTERE [Suspect]
     Dosage: INFUSION
     Route: 042
     Dates: start: 20080121
  3. NEULASTA [Suspect]
     Indication: CHEMOTHERAPY
     Dosage: DURATION - 4 COURSES EVERY 3 WEEKS
     Route: 058
     Dates: start: 20080122
  4. KYTRIL [Concomitant]
     Indication: PREMEDICATION
     Route: 042
  5. DECADRON [Concomitant]
     Indication: PREMEDICATION
     Route: 042
  6. ASPIRIN [Concomitant]
     Route: 048
  7. ATARAX [Concomitant]
  8. MAGIC MOUTHWASH [Concomitant]
  9. ZOFRAN [Concomitant]
     Route: 048

REACTIONS (1)
  - URTICARIA [None]
